FAERS Safety Report 22317144 (Version 1)
Quarter: 2023Q2

REPORT INFORMATION
  Report Type: Spontaneous
  Country: US (occurrence: US)
  Receive Date: 20230514
  Receipt Date: 20230514
  Transmission Date: 20230722
  Serious: Yes (Hospitalization, Other)
  Sender: FDA-Public Use
  Company Number: US-BAXTER-2023BAX021135

PATIENT
  Sex: Male
  Weight: 122.47 kg

DRUGS (2)
  1. ZOSYN [Suspect]
     Active Substance: PIPERACILLIN SODIUM\TAZOBACTAM SODIUM
     Dosage: 3.375 EVERY 6 HRS
     Route: 065
     Dates: start: 2020
  2. VANCOMYCIN [Suspect]
     Active Substance: VANCOMYCIN
     Dosage: 5 G IN A 24 HR PERIOD FOR 3 DAYS, VIAL, (2.5 G EVERY 12 HOURS) (PFIZER BULK BOTTLE)
     Route: 065
     Dates: start: 2020

REACTIONS (10)
  - Acute kidney injury [Recovering/Resolving]
  - Renal tubular necrosis [Recovering/Resolving]
  - Renal failure [Recovering/Resolving]
  - Blood creatinine abnormal [Recovering/Resolving]
  - White blood cell count increased [Recovered/Resolved]
  - Illness [Unknown]
  - Glucose tolerance impaired [Unknown]
  - Hypertension [Unknown]
  - Cardiovascular disorder [Unknown]
  - Vitiligo [Unknown]

NARRATIVE: CASE EVENT DATE: 20200101
